FAERS Safety Report 8184753-5 (Version None)
Quarter: 2012Q1

REPORT INFORMATION
  Report Type: 
  Country: None (occurrence: None)
  Receive Date: 20120305
  Receipt Date: 20120305
  Transmission Date: 20120608
  Serious: No
  Sender: FDA-Public Use
  Company Number: None

PATIENT
  Age: 55 Year
  Sex: Female

DRUGS (4)
  1. ASPIRIN [Concomitant]
     Indication: CORONARY ARTERY DISEASE
     Dosage: 81MG
     Route: 048
  2. ASPIRIN [Concomitant]
     Indication: PROPHYLAXIS
     Dosage: 81MG
     Route: 048
  3. CLOPIDOGREL [Suspect]
     Indication: PROPHYLAXIS
     Dosage: 75MG
     Route: 048
  4. CLOPIDOGREL [Suspect]
     Indication: CORONARY ARTERY DISEASE
     Dosage: 75MG
     Route: 048

REACTIONS (7)
  - ANAEMIA [None]
  - MELAENA [None]
  - DIZZINESS [None]
  - DYSPNOEA [None]
  - EPISTAXIS [None]
  - SLEEP APNOEA SYNDROME [None]
  - TACHYCARDIA [None]
